FAERS Safety Report 24911908 (Version 2)
Quarter: 2025Q1

REPORT INFORMATION
  Report Type: Report from Study
  Country: US (occurrence: US)
  Receive Date: 20250131
  Receipt Date: 20250304
  Transmission Date: 20250409
  Serious: Yes (Hospitalization, Other)
  Sender: DECIPHERA PHARMACEUTICALS
  Company Number: US-DECIPHERA PHARMACEUTICALS LLC-2025US000074

PATIENT
  Age: 50 Year
  Sex: Female

DRUGS (3)
  1. QINLOCK [Suspect]
     Active Substance: RIPRETINIB
     Indication: Gastrointestinal stromal tumour
     Dosage: 150 MILLIGRAM, QD
     Route: 048
     Dates: start: 20241230, end: 202501
  2. QINLOCK [Suspect]
     Active Substance: RIPRETINIB
     Dosage: 150 MILLIGRAM, QD (STOPPED FOR TWO WEEKS)
     Route: 048
     Dates: start: 202501, end: 2025
  3. QINLOCK [Suspect]
     Active Substance: RIPRETINIB
     Dosage: 150 MILLIGRAM, QD (RESUMED FOR COUPLE OF WEEKS)
     Route: 048
     Dates: start: 2025, end: 2025

REACTIONS (6)
  - Infection [Unknown]
  - Abdominal pain upper [Unknown]
  - Back pain [Unknown]
  - Malignant neoplasm progression [Unknown]
  - Wound [Unknown]
  - Wound haemorrhage [Unknown]

NARRATIVE: CASE EVENT DATE: 20250101
